FAERS Safety Report 20451855 (Version 8)
Quarter: 2022Q2

REPORT INFORMATION
  Report Type: Report from Study
  Country: US (occurrence: US)
  Receive Date: 20220209
  Receipt Date: 20220527
  Transmission Date: 20220721
  Serious: No
  Sender: FDA-Public Use
  Company Number: US-NOVARTISTESTPH-NVSC2022US027514

PATIENT
  Age: 56 Year
  Sex: Female

DRUGS (2)
  1. ENTRESTO [Suspect]
     Active Substance: SACUBITRIL\VALSARTAN
     Indication: Product used for unknown indication
     Dosage: 1 DOSAGE FORM, BID (49/51 MG)
     Route: 048
     Dates: start: 20220112
  2. ENTRESTO [Suspect]
     Active Substance: SACUBITRIL\VALSARTAN
     Dosage: 0.5 DOSAGE FORM, UNKNOWN
     Route: 065
     Dates: start: 20220221

REACTIONS (11)
  - Small fibre neuropathy [Unknown]
  - Dyspnoea [Unknown]
  - Procedural pain [Unknown]
  - Somnolence [Unknown]
  - Irregular sleep phase [Unknown]
  - Malaise [Unknown]
  - Thyroid hormones decreased [Unknown]
  - Head discomfort [Recovered/Resolved]
  - Hypersomnia [Unknown]
  - Fatigue [Unknown]
  - Wrong technique in product usage process [Unknown]

NARRATIVE: CASE EVENT DATE: 20220221
